FAERS Safety Report 26166413 (Version 1)
Quarter: 2025Q4

REPORT INFORMATION
  Report Type: Spontaneous
  Country: EU (occurrence: EU)
  Receive Date: 20251217
  Receipt Date: 20251217
  Transmission Date: 20260119
  Serious: Yes (Death)
  Sender: REGENERON
  Company Number: EU-BAYER-2025A159478

PATIENT

DRUGS (1)
  1. EYLEA [Suspect]
     Active Substance: AFLIBERCEPT
     Indication: Neuroendocrine breast tumour
     Dosage: 0.07 ML, 40 MG/ML

REACTIONS (2)
  - Fall [Fatal]
  - Off label use [Unknown]
